FAERS Safety Report 8391196-8 (Version None)
Quarter: 2012Q2

REPORT INFORMATION
  Report Type: 
  Country: None (occurrence: None)
  Receive Date: 20120529
  Receipt Date: 20120525
  Transmission Date: 20120825
  Serious: Yes (Death)
  Sender: FDA-Public Use
  Company Number: DK-ASTRAZENECA-2012SE33916

PATIENT
  Age: 78 Year
  Sex: Male
  Weight: 75 kg

DRUGS (2)
  1. SEROQUEL XR [Suspect]
     Indication: DEPRESSION
     Route: 048
     Dates: start: 20120510
  2. ACETAMINOPHEN [Suspect]
     Indication: PAIN
     Dosage: 2 TAB X 3, 500 MG
     Route: 048
     Dates: start: 20120509

REACTIONS (1)
  - SUDDEN DEATH [None]
